FAERS Safety Report 10334484 (Version 1)
Quarter: 2014Q3

REPORT INFORMATION
  Report Type: Spontaneous
  Country: US (occurrence: None)
  Receive Date: 20140721
  Receipt Date: 20140721
  Transmission Date: 20150326
  Serious: Yes (Other)
  Sender: FDA-Public Use
  Company Number: None

PATIENT
  Age: 63 Year
  Sex: Female
  Weight: 79.38 kg

DRUGS (5)
  1. GABAPENTIN. [Suspect]
     Active Substance: GABAPENTIN
     Indication: CONVULSION
     Dosage: 5 X DAILY -- TAKEN BY MOUTH
     Route: 048
     Dates: start: 20040301, end: 20140710
  2. GABAPENTIN. [Suspect]
     Active Substance: GABAPENTIN
     Indication: PRURITUS
     Dosage: 5 X DAILY -- TAKEN BY MOUTH
     Route: 048
     Dates: start: 20040301, end: 20140710
  3. GABAPENTIN. [Suspect]
     Active Substance: GABAPENTIN
     Indication: DIPLOPIA
     Dosage: 5 X DAILY -- TAKEN BY MOUTH
     Route: 048
     Dates: start: 20040301, end: 20140710
  4. GABAPENTIN. [Suspect]
     Active Substance: GABAPENTIN
     Indication: RHEUMATOID ARTHRITIS
     Dosage: 5 X DAILY -- TAKEN BY MOUTH
     Route: 048
     Dates: start: 20040301, end: 20140710
  5. GABAPENTIN. [Suspect]
     Active Substance: GABAPENTIN
     Indication: DIABETIC NEUROPATHY
     Dosage: 5 X DAILY -- TAKEN BY MOUTH
     Route: 048
     Dates: start: 20040301, end: 20140710

REACTIONS (6)
  - Drug withdrawal syndrome [None]
  - Nightmare [None]
  - Pruritus [None]
  - Cognitive disorder [None]
  - Confusional state [None]
  - Convulsion [None]

NARRATIVE: CASE EVENT DATE: 20140710
